FAERS Safety Report 12916575 (Version 2)
Quarter: 2017Q1

REPORT INFORMATION
  Report Type: Spontaneous
  Country: US (occurrence: US)
  Receive Date: 20161107
  Receipt Date: 20170308
  Transmission Date: 20170428
  Serious: No
  Sender: FDA-Public Use
  Company Number: US-JAZZ-2016-US-017098

PATIENT
  Sex: Female
  Weight: 112.47 kg

DRUGS (20)
  1. XYREM [Suspect]
     Active Substance: SODIUM OXYBATE
     Dosage: 3 G, BID
     Route: 048
     Dates: start: 201304, end: 201304
  2. PROPRANOLOL [Concomitant]
     Active Substance: PROPRANOLOL HYDROCHLORIDE
  3. PROMETHAZINE [Concomitant]
     Active Substance: PROMETHAZINE\PROMETHAZINE HYDROCHLORIDE
  4. XYREM [Suspect]
     Active Substance: SODIUM OXYBATE
     Indication: NARCOLEPSY
     Dosage: 2.25 G, BID
     Route: 048
     Dates: start: 20130430, end: 201304
  5. BOTOX [Concomitant]
     Active Substance: ONABOTULINUMTOXINA
  6. EFFEXOR [Concomitant]
     Active Substance: VENLAFAXINE HYDROCHLORIDE
  7. PROZAC [Concomitant]
     Active Substance: FLUOXETINE HYDROCHLORIDE
  8. FETZIMA [Concomitant]
     Active Substance: LEVOMILNACIPRAN HYDROCHLORIDE
  9. PRISTIQ EXTENDED-RELEASE [Concomitant]
     Active Substance: DESVENLAFAXINE SUCCINATE
  10. MAXALT [Concomitant]
     Active Substance: RIZATRIPTAN BENZOATE
  11. XYREM [Suspect]
     Active Substance: SODIUM OXYBATE
     Dosage: 3.75 G, BID
     Route: 048
     Dates: start: 201304, end: 20160818
  12. TESTOSTERONE. [Concomitant]
     Active Substance: TESTOSTERONE
  13. PERCOCET [Concomitant]
     Active Substance: ACETAMINOPHEN\OXYCODONE HYDROCHLORIDE
  14. CELEBREX [Concomitant]
     Active Substance: CELECOXIB
  15. BENICAR [Concomitant]
     Active Substance: OLMESARTAN MEDOXOMIL
  16. NUVIGIL [Concomitant]
     Active Substance: ARMODAFINIL
  17. CONTRAVE [Concomitant]
     Active Substance: BUPROPION HYDROCHLORIDE\NALTREXONE HYDROCHLORIDE
  18. METHYLPHENIDATE. [Concomitant]
     Active Substance: METHYLPHENIDATE
  19. CLONAZEPAM. [Concomitant]
     Active Substance: CLONAZEPAM
  20. CYMBALTA [Concomitant]
     Active Substance: DULOXETINE HYDROCHLORIDE

REACTIONS (1)
  - Exposure during pregnancy [Unknown]

NARRATIVE: CASE EVENT DATE: 2016
